FAERS Safety Report 5929212-2 (Version None)
Quarter: 2008Q4

REPORT INFORMATION
  Report Type: 
  Country: None (occurrence: None)
  Receive Date: 20081023
  Receipt Date: 20081023
  Transmission Date: 20090506
  Serious: Yes (Other)
  Sender: FDA-Public Use
  Company Number: None

PATIENT
  Age: 63 Year
  Sex: Male
  Weight: 68.0396 kg

DRUGS (2)
  1. ENDUR-ACIN 500 MG [Suspect]
     Indication: CORONARY ARTERY DISEASE
     Dosage: 500 MG BID PO
     Route: 048
     Dates: start: 20080701, end: 20081004
  2. ENDUR-ACIN 500 MG [Suspect]
     Indication: HYPERLIPIDAEMIA
     Dosage: 500 MG BID PO
     Route: 048
     Dates: start: 20080701, end: 20081004

REACTIONS (9)
  - ALANINE AMINOTRANSFERASE INCREASED [None]
  - ANOREXIA [None]
  - ASPARTATE AMINOTRANSFERASE INCREASED [None]
  - BLOOD ALBUMIN DECREASED [None]
  - BLOOD ALKALINE PHOSPHATASE INCREASED [None]
  - BLOOD CHOLESTEROL INCREASED [None]
  - HYPOGLYCAEMIA [None]
  - PITTING OEDEMA [None]
  - PRODUCT QUALITY ISSUE [None]
